FAERS Safety Report 7526362-4 (Version None)
Quarter: 2011Q2

REPORT INFORMATION
  Report Type: 
  Country: None (occurrence: None)
  Receive Date: 20110606
  Receipt Date: 20100110
  Transmission Date: 20111010
  Serious: Yes (Death, Hospitalization, Other)
  Sender: FDA-Public Use
  Company Number: US-BAYER-201010553NA

PATIENT
  Age: 7 Month
  Sex: Female
  Weight: 6.2 kg

DRUGS (24)
  1. TRASYLOL [Suspect]
  2. HEPARIN [Concomitant]
     Dosage: 0.75 ML, UNK
     Route: 042
  3. LASIX [Concomitant]
     Dosage: UNK
     Route: 042
     Dates: start: 20040722
  4. FERROSULFAT [Concomitant]
     Dosage: 0.2 ML, BID
  5. FOLIC ACID [Concomitant]
     Dosage: 1.5 MG, QD
  6. ATROPINE [Concomitant]
     Dosage: 0.4 MG, UNK
     Route: 048
  7. VECURONIUM BROMIDE [Concomitant]
     Dosage: 0.6 MG, Q1HR PRN
     Dates: start: 20040722
  8. HEPARIN [Concomitant]
     Dosage: 500 UNITS
     Route: 042
     Dates: start: 20040722
  9. THROMBIN LOCAL SOLUTION [Concomitant]
     Dosage: UNK
     Route: 042
     Dates: start: 20040723
  10. REGLAN [Concomitant]
     Dosage: 1 ML, EVERY 2-4 TIMES DAILY
  11. HEPARIN [Concomitant]
     Dosage: 700 UNITS
     Route: 042
     Dates: start: 20040722
  12. CONCENTRATED TYLENOL INFANT DROPS [Concomitant]
     Dosage: 4.4 ML, UNK
  13. DOPAMINE HCL [Concomitant]
     Dosage: UNK
     Dates: start: 20040722
  14. CALCITRIOL [Concomitant]
     Dosage: 0.5 ML, TIW
  15. PREVACID [Concomitant]
     Dosage: 2.5 ML, BID (3MG/ML)
  16. CEFUROXIME [Concomitant]
     Dosage: 300 MG, UNK
     Dates: start: 20040722
  17. TRASYLOL [Suspect]
     Indication: TRICUSPID VALVE REPAIR
     Dosage: 50 ML THEN 25 ML
     Route: 042
     Dates: start: 20040722
  18. PROTAMINE SULFATE [Concomitant]
     Dosage: UNK
     Route: 042
     Dates: start: 20040722
  19. ZANTAC [Concomitant]
     Dosage: 2 ML, HS
  20. PAVULON [Concomitant]
     Dosage: UNK
     Route: 042
     Dates: start: 20040722
  21. MORPHINE [Concomitant]
     Dosage: UNK
     Dates: start: 20040722
  22. FENTANYL [Concomitant]
     Dosage: UNK
     Dates: start: 20040722
  23. TRASYLOL [Suspect]
     Indication: ATRIAL SEPTAL DEFECT REPAIR
     Dosage: 50 ML
     Route: 042
     Dates: start: 20040723
  24. MILRINONE [Concomitant]
     Dosage: UNK
     Dates: start: 20040722

REACTIONS (11)
  - MYOCARDIAL INFARCTION [None]
  - DEATH [None]
  - RENAL FAILURE [None]
  - FEAR [None]
  - DEPRESSION [None]
  - CEREBROVASCULAR ACCIDENT [None]
  - UNEVALUABLE EVENT [None]
  - PAIN [None]
  - ANXIETY [None]
  - INJURY [None]
  - ANHEDONIA [None]
